FAERS Safety Report 6220222-7 (Version None)
Quarter: 2009Q2

REPORT INFORMATION
  Report Type: 
  Country: None (occurrence: None)
  Receive Date: 20090605
  Receipt Date: 20090527
  Transmission Date: 20091009
  Serious: Yes (Disabling)
  Sender: FDA-Public Use
  Company Number: 2009US001951

PATIENT
  Age: 73 Year
  Sex: Male

DRUGS (2)
  1. AMBISOME [Suspect]
     Indication: FEBRILE NEUTROPENIA
     Dosage: 135 MG, UID/QD, IV NOS; 125 MG, UID/QD, IV NOS
     Route: 042
     Dates: start: 20081121, end: 20081217
  2. AMBISOME [Suspect]
     Indication: FEBRILE NEUTROPENIA
     Dosage: 135 MG, UID/QD, IV NOS; 125 MG, UID/QD, IV NOS
     Route: 042
     Dates: start: 20090227, end: 20090319

REACTIONS (1)
  - DEAFNESS [None]
